FAERS Safety Report 23740943 (Version 2)
Quarter: 2024Q2

REPORT INFORMATION
  Report Type: Other
  Country: CA (occurrence: CA)
  Receive Date: 20240415
  Receipt Date: 20240422
  Transmission Date: 20240716
  Serious: Yes (Death, Other)
  Sender: FDA-Public Use
  Company Number: CA-APOTEX-2024AP004502

PATIENT
  Sex: Female

DRUGS (1)
  1. ERLOTINIB HYDROCHLORIDE [Suspect]
     Active Substance: ERLOTINIB HYDROCHLORIDE
     Indication: Non-small cell lung cancer
     Dosage: 150 MILLIGRAM, QD
     Route: 048
     Dates: start: 20220202, end: 202305

REACTIONS (2)
  - Non-small cell lung cancer [Fatal]
  - Pulmonary embolism [Fatal]
